FAERS Safety Report 9054245 (Version 1)
Quarter: 2013Q1

REPORT INFORMATION
  Report Type: Report from Study
  Country: US (occurrence: US)
  Receive Date: 20130208
  Receipt Date: 20130208
  Transmission Date: 20140127
  Serious: Yes (Other)
  Sender: FDA-Public Use
  Company Number: US-VIIV HEALTHCARE LIMITED-A1010863A

PATIENT
  Age: 24 Year
  Sex: Female

DRUGS (7)
  1. TRIZIVIR [Suspect]
     Indication: ANTIRETROVIRAL THERAPY
     Dosage: 2TAB PER DAY
     Route: 048
     Dates: start: 20120405
  2. KALETRA [Suspect]
     Indication: ANTIRETROVIRAL THERAPY
     Dosage: 4TAB PER DAY
     Route: 048
     Dates: start: 20120405
  3. TOBACCO [Concomitant]
  4. METRONIDAZOLE [Concomitant]
  5. ROCEPHIN [Concomitant]
  6. CANNABIS SATIVA SUBSP. INDICA TOP [Concomitant]
  7. PHENCYCLIDINE [Concomitant]

REACTIONS (7)
  - Gonorrhoea [Unknown]
  - Polydactyly [Unknown]
  - Sexually transmitted disease [Unknown]
  - Trichomoniasis [Unknown]
  - Herpes simplex [Unknown]
  - Live birth [Unknown]
  - Exposure during pregnancy [Unknown]
